FAERS Safety Report 23571115 (Version 1)
Quarter: 2024Q1

REPORT INFORMATION
  Report Type: Spontaneous
  Country: US (occurrence: None)
  Receive Date: 20240226
  Receipt Date: 20240226
  Transmission Date: 20240410
  Serious: Yes (Other)
  Sender: FDA-Public Use
  Company Number: None

PATIENT
  Age: 27 Year
  Sex: Female

DRUGS (3)
  1. PARAGARD T 380A [Suspect]
     Active Substance: COPPER
     Dates: start: 20220712
  2. BORIC ACID [Concomitant]
     Active Substance: BORIC ACID
  3. MONISTAT [Concomitant]
     Active Substance: MICONAZOLE NITRATE

REACTIONS (4)
  - Complication associated with device [None]
  - Bacterial vaginosis [None]
  - Anxiety [None]
  - Psychiatric symptom [None]

NARRATIVE: CASE EVENT DATE: 20220911
